FAERS Safety Report 4743907-8 (Version None)
Quarter: 2005Q3

REPORT INFORMATION
  Report Type: 
  Country: None (occurrence: None)
  Receive Date: 20050812
  Receipt Date: 20050527
  Transmission Date: 20060218
  Serious: Yes (Life-Threatening)
  Sender: FDA-Public Use
  Company Number: FR-NOVOPROD-244487

PATIENT
  Age: 50 Year
  Sex: Female

DRUGS (10)
  1. NOVONORM [Suspect]
     Indication: DIABETES MELLITUS
  2. LANTUS [Concomitant]
     Indication: DIABETES MELLITUS
     Dosage: 14 IU IN THE MORNING
     Route: 058
  3. TEGRETOL [Concomitant]
     Indication: ILL-DEFINED DISORDER
     Dosage: 2 TAB IN THE MORNING
  4. LIPANTIL [Concomitant]
     Indication: ILL-DEFINED DISORDER
     Dosage: .1 TAB, QD
  5. EUROBIOL [Concomitant]
     Indication: ILL-DEFINED DISORDER
     Dosage: 3 TAB, QD
  6. TRANXENE [Concomitant]
     Indication: ILL-DEFINED DISORDER
     Dosage: 2 TAB, QD
  7. LAROXYL [Concomitant]
     Indication: ILL-DEFINED DISORDER
     Dosage: 3 TAB, QD
  8. DOLIPRANE [Concomitant]
     Indication: ILL-DEFINED DISORDER
     Dosage: 2 TAB, QD
  9. DAFLON 500 [Concomitant]
     Indication: ILL-DEFINED DISORDER
     Dosage: 2 TAB, QD
  10. OMEPRAZOLE [Concomitant]
     Indication: ILL-DEFINED DISORDER
     Dosage: 1 TAB, QD

REACTIONS (2)
  - EPILEPSY [None]
  - HYPOGLYCAEMIA [None]
